FAERS Safety Report 13512115 (Version 3)
Quarter: 2017Q2

REPORT INFORMATION
  Report Type: Spontaneous
  Country: US (occurrence: US)
  Receive Date: 20170504
  Receipt Date: 20170509
  Transmission Date: 20170830
  Serious: Yes (Other)
  Sender: FDA-Public Use
  Company Number: ALCN2017US002903

PATIENT
  Age: 64 Year
  Sex: Male
  Weight: 88.44 kg

DRUGS (10)
  1. DUREZOL [Suspect]
     Active Substance: DIFLUPREDNATE
     Indication: POSTOPERATIVE CARE
     Dosage: UNK UNK, QD
     Route: 047
     Dates: start: 20170418
  2. TETRACAINE. [Suspect]
     Active Substance: TETRACAINE
     Indication: PREOPERATIVE CARE
     Dosage: UNK
     Route: 047
     Dates: start: 20170419
  3. BSS [Suspect]
     Active Substance: CALCIUM CHLORIDE\MAGNESIUM CHLORIDE\POTASSIUM CHLORIDE\SODIUM ACETATE\SODIUM CHLORIDE\SODIUM CITRATE
     Indication: EYE IRRIGATION
     Route: 047
  4. BETADINE [Suspect]
     Active Substance: POVIDONE-IODINE
     Indication: INTRAOPERATIVE CARE
     Route: 047
  5. PHENYLEPHRINE HCL [Suspect]
     Active Substance: PHENYLEPHRINE HYDROCHLORIDE
     Indication: PREOPERATIVE CARE
     Dosage: UNK UNK, QD
     Route: 047
     Dates: start: 20170419
  6. COMBIGAN [Suspect]
     Active Substance: BRIMONIDINE TARTRATE\TIMOLOL MALEATE
     Indication: PRODUCT USED FOR UNKNOWN INDICATION
     Dosage: UNK
     Route: 047
  7. BESIVANCE [Suspect]
     Active Substance: BESIFLOXACIN
     Dosage: UNK UNK, TID
     Route: 047
     Dates: start: 20170419
  8. BESIVANCE [Suspect]
     Active Substance: BESIFLOXACIN
     Indication: POSTOPERATIVE CARE
     Dosage: UNK UNK, TID
     Route: 047
     Dates: start: 20170416, end: 20170418
  9. TROPICAMIDE. [Suspect]
     Active Substance: TROPICAMIDE
     Indication: PREOPERATIVE CARE
     Dosage: UNK
     Route: 047
     Dates: start: 20170419
  10. DUREZOL [Suspect]
     Active Substance: DIFLUPREDNATE
     Dosage: UNK, BID
     Route: 047
     Dates: start: 20170419, end: 20170421

REACTIONS (4)
  - Anterior chamber fibrin [Unknown]
  - Corneal oedema [Not Recovered/Not Resolved]
  - Toxic anterior segment syndrome [Not Recovered/Not Resolved]
  - Anterior chamber cell [Unknown]

NARRATIVE: CASE EVENT DATE: 20170421
